FAERS Safety Report 6572746-0 (Version None)
Quarter: 2010Q1

REPORT INFORMATION
  Report Type: 
  Country: None (occurrence: None)
  Receive Date: 20100205
  Receipt Date: 20100125
  Transmission Date: 20100710
  Serious: Yes (Hospitalization, Other)
  Sender: FDA-Public Use
  Company Number: PHEH2009US15242

PATIENT
  Sex: Female
  Weight: 54.422 kg

DRUGS (10)
  1. RECLAST [Suspect]
     Indication: OSTEOPOROSIS
     Dosage: 5 MG, ONCE/SINGLE
     Dates: start: 20090929, end: 20090929
  2. LEVOTHROID [Concomitant]
     Indication: HYPOTHYROIDISM
     Dosage: 88 UG, QD
  3. NEXIUM [Concomitant]
     Indication: BARRETT'S OESOPHAGUS
     Dosage: 40 MG, UNK
  4. CHOLESTYRAMINE RESIN [Concomitant]
  5. BUPROPION [Concomitant]
  6. KLONOPIN [Concomitant]
     Dosage: 5 MG, QD
     Route: 048
  7. PREVALITE [Concomitant]
     Indication: DIARRHOEA
  8. VITAMIN D [Concomitant]
  9. CALCIUM [Concomitant]
  10. QUESTRAN [Concomitant]
     Dosage: 4 GM, UNK

REACTIONS (6)
  - ABORTION INDUCED [None]
  - DEPRESSION [None]
  - DRUG EXPOSURE DURING PREGNANCY [None]
  - INSOMNIA [None]
  - MYALGIA [None]
  - PAIN IN EXTREMITY [None]
